FAERS Safety Report 20963860 (Version 1)
Quarter: 2022Q2

REPORT INFORMATION
  Report Type: Spontaneous
  Country: US (occurrence: None)
  Receive Date: 20220615
  Receipt Date: 20220615
  Transmission Date: 20220721
  Serious: No
  Sender: FDA-Public Use
  Company Number: None

PATIENT
  Sex: Male
  Weight: 80.29 kg

DRUGS (12)
  1. ABIRATERONE ACETATE [Suspect]
     Active Substance: ABIRATERONE ACETATE
     Indication: Prostate cancer
     Dosage: FREQUENCY : DAILY;?
     Route: 048
     Dates: start: 20220323
  2. ATORVASTATIN CALCIUM [Concomitant]
  3. DIGOX [Concomitant]
  4. DITROPAN XL [Concomitant]
     Active Substance: OXYBUTYNIN CHLORIDE
  5. FLOMAX [Concomitant]
  6. GLIMEPIRIDE [Concomitant]
  7. LEVOTHYROXINE SODIUM [Concomitant]
  8. Metformin HCi [Concomitant]
  9. METOPROLOL TARTRATE [Concomitant]
     Active Substance: METOPROLOL TARTRATE
  10. PREDNISONE [Concomitant]
     Active Substance: PREDNISONE
  11. PROTONIX [Concomitant]
     Active Substance: PANTOPRAZOLE SODIUM
  12. XARELTO [Concomitant]
     Active Substance: RIVAROXABAN

REACTIONS (2)
  - Drug ineffective [None]
  - Prostatic specific antigen increased [None]
